FAERS Safety Report 9767776 (Version 3)
Quarter: 2014Q1

REPORT INFORMATION
  Report Type: Report from Study
  Country: CA (occurrence: CA)
  Receive Date: 20131217
  Receipt Date: 20140127
  Transmission Date: 20141002
  Serious: Yes (Other)
  Sender: FDA-Public Use
  Company Number: CA-AMGEN-CANNI2013087595

PATIENT
  Age: 54 Year
  Sex: Male

DRUGS (33)
  1. XGEVA [Suspect]
     Indication: METASTASES TO BONE
     Dosage: 120 MG, Q4WK
     Route: 058
     Dates: start: 20120217
  2. DENOSUMAB [Suspect]
     Indication: PRODUCT USED FOR UNKNOWN INDICATION
     Route: 065
  3. ZOMETA [Concomitant]
     Dosage: UNK
     Dates: start: 20100827, end: 20110429
  4. AVASTIN                            /00848101/ [Concomitant]
  5. HYDROMORPHONE [Concomitant]
     Indication: PAIN
     Dosage: 12 MG, AS NECESSARY
  6. METHADONE HCL [Concomitant]
     Indication: PAIN
     Dosage: 1 MG, 2 TABLET, TID
  7. LACTULOSE [Concomitant]
     Dosage: 15 ML, BID
  8. INTRON A [Concomitant]
     Dosage: 5 MILLION UNITS, QOD
     Route: 058
  9. RABEPRAZOLE SODIUM [Concomitant]
     Dosage: 20 MG, QD
  10. SOFLAX                             /00061602/ [Concomitant]
     Dosage: 100 MG 2 CAPSULE, Q6H
  11. LYRICA [Concomitant]
     Dosage: 75 MG, BID
  12. METHYLPHENIDATE [Concomitant]
     Indication: CENTRAL NERVOUS SYSTEM STIMULATION
     Dosage: 10 MG, HALF TABLET, BID
  13. AZITHROMYCIN [Concomitant]
     Dosage: 250 MG, QD
  14. RESTORALAX [Concomitant]
     Dosage: 17 G, UNK
  15. LAX-A-DAY [Concomitant]
     Dosage: 17 G, QD
  16. NABILONE [Concomitant]
     Dosage: 0.5 MG, BID
  17. DEXAMETHASONE [Concomitant]
     Dosage: 4 MG, QD
  18. METHOTREXATE SODIUM [Concomitant]
     Dosage: 2.5 MG, UNK
  19. PROCYTOX [Concomitant]
     Dosage: 50 MG, QD
  20. ACETAMINOPHEN [Concomitant]
     Dosage: 325 MG, 2 TABLETS
  21. DDAVP                              /00361902/ [Concomitant]
     Dosage: 60 MUG, QD
  22. VOTRIENT [Concomitant]
     Dosage: 200 MG, 4 TABLETS, QD
  23. METOCLOPRAMIDE [Concomitant]
     Dosage: 10 MG, TID
  24. AMOXICILLIN [Concomitant]
     Dosage: 500 MG, TID
  25. CIPROFLOXACIN [Concomitant]
     Dosage: 500 MG, BID
  26. HYDROMORPH CONTIN [Concomitant]
     Dosage: 24 MG, BID
  27. CEPHALEXIN                         /00145501/ [Concomitant]
     Dosage: 500 MG, QID
  28. TAMSULOSIN [Concomitant]
     Dosage: 0.4 MG, QD
  29. BACITRACIN ZINC W/POLYMYCIN B SULFATE [Concomitant]
     Dosage: UNK UNK, QID
  30. ANUSOL HC [Concomitant]
     Dosage: UNK UNK, BID
  31. SENOKOT                            /00571901/ [Concomitant]
     Dosage: 8.6 MG, AS NECESSARY
  32. AFINITOR [Concomitant]
     Dosage: 10 MG, QD
  33. OXYCOCET [Concomitant]
     Dosage: 5 AND 325 MG, AS NECESSARY

REACTIONS (1)
  - Osteonecrosis of jaw [Not Recovered/Not Resolved]
